FAERS Safety Report 6404551-X (Version None)
Quarter: 2009Q4

REPORT INFORMATION
  Report Type: 
  Country: None (occurrence: None)
  Receive Date: 20091016
  Receipt Date: 20091012
  Transmission Date: 20100525
  Serious: Yes (Death)
  Sender: FDA-Public Use
  Company Number: PHEH2009US12323

PATIENT
  Sex: Male

DRUGS (2)
  1. EXJADE [Suspect]
     Indication: APLASTIC ANAEMIA
     Dosage: 500 MG, TID
     Route: 048
     Dates: start: 20090707, end: 20090908
  2. EXJADE [Suspect]
     Indication: IRON OVERLOAD

REACTIONS (2)
  - CARDIAC FAILURE CONGESTIVE [None]
  - MYOCARDIAL INFARCTION [None]
